FAERS Safety Report 9442143 (Version 1)
Quarter: 2013Q3

REPORT INFORMATION
  Report Type: Spontaneous
  Country: US (occurrence: US)
  Receive Date: 20130806
  Receipt Date: 20130806
  Transmission Date: 20140515
  Serious: Yes (Other)
  Sender: FDA-Public Use
  Company Number: PHEH2013US016423

PATIENT
  Sex: Male

DRUGS (3)
  1. GLEEVEC [Suspect]
     Dosage: 400 MG, UNK
  2. GLEEVEC [Suspect]
     Dosage: 500 MG, QD
  3. CARVEDILOL [Concomitant]
     Indication: CHRONIC MYELOID LEUKAEMIA
     Dosage: 2 DF, QD

REACTIONS (3)
  - Ejection fraction decreased [Unknown]
  - Diverticulitis [Unknown]
  - Abdominal pain upper [Unknown]
